FAERS Safety Report 20817476 (Version 2)
Quarter: 2022Q2

REPORT INFORMATION
  Report Type: Spontaneous
  Country: AR (occurrence: AR)
  Receive Date: 20220512
  Receipt Date: 20220522
  Transmission Date: 20220721
  Serious: Yes (Other)
  Sender: FDA-Public Use
  Company Number: AR-PFIZER INC-202200668284

PATIENT
  Age: 67 Year
  Sex: Female

DRUGS (1)
  1. ENBREL [Suspect]
     Active Substance: ETANERCEPT
     Indication: Rheumatoid arthritis
     Dosage: 50 MG, WEEKLY
     Route: 065
     Dates: start: 20080514

REACTIONS (4)
  - Hip surgery [Unknown]
  - Neoplasm malignant [Unknown]
  - Sleep deficit [Unknown]
  - Finger deformity [Unknown]

NARRATIVE: CASE EVENT DATE: 20220403
